FAERS Safety Report 10064225 (Version 1)
Quarter: 2013Q4

REPORT INFORMATION
  Report Type: Spontaneous
  Country: US (occurrence: None)
  Receive Date: 20131106
  Receipt Date: 20131106
  Transmission Date: 20140711
  Serious: Yes (Death)
  Sender: FDA-Public Use
  Company Number: 20130101

PATIENT
  Age: 66 Year
  Sex: Male
  Weight: 106.6 kg

DRUGS (2)
  1. SUBSYS [Suspect]
     Indication: CANCER PAIN
     Dosage: 1-2
     Route: 060
  2. OXYCODONE [Concomitant]

REACTIONS (1)
  - Breakthrough pain [None]
